FAERS Safety Report 5190530-X (Version None)
Quarter: 2006Q4

REPORT INFORMATION
  Report Type: 
  Country: None (occurrence: None)
  Receive Date: 20061222
  Receipt Date: 20061215
  Transmission Date: 20070319
  Serious: Yes (Hospitalization)
  Sender: FDA-Public Use
  Company Number: SE-ROCHE-475253

PATIENT
  Age: 63 Year
  Sex: Female

DRUGS (4)
  1. ROACCUTAN [Suspect]
     Indication: ILL-DEFINED DISORDER
     Dosage: DOSAGE REGIMEN REPORTED AS 60 MGD.
     Route: 048
     Dates: start: 20051215, end: 20060206
  2. SANDIMMUNE [Suspect]
     Indication: DRUG USE FOR UNKNOWN INDICATION
     Dosage: DOSAGE REGIMEN REPORTED AS 150 MGD, LONG-TERM TREATMENT. INDICATION REPORTED AS ARTHRITIS RHEUMATOI+
     Route: 048
     Dates: start: 20031015
  3. METHOTREXATE [Suspect]
     Indication: DRUG USE FOR UNKNOWN INDICATION
     Dosage: DRUG REPORTED AS METHOTREXATE OMNIA. DOSAGE REGIMEN REPORTED AS MGW. INDICATION REPORTED AS ARTHRIT+
     Route: 048
     Dates: start: 20040415, end: 20060615
  4. IMUREL [Suspect]
     Indication: DRUG USE FOR UNKNOWN INDICATION
     Dosage: DOSAGE REGIMEN REPORTED AS 100 MGD, LONG-TERM TREATMENT. INDICATION REPORTED AS ARTHRITIS RHEUMATOI+
     Route: 048
     Dates: start: 20030315

REACTIONS (2)
  - NEOPLASM [None]
  - TONGUE NEOPLASM MALIGNANT STAGE UNSPECIFIED [None]
